FAERS Safety Report 7369301-1 (Version None)
Quarter: 2011Q1

REPORT INFORMATION
  Report Type: 
  Country: None (occurrence: None)
  Receive Date: 20110323
  Receipt Date: 20110314
  Transmission Date: 20110831
  Serious: Yes (Other)
  Sender: FDA-Public Use
  Company Number: B0699347A

PATIENT
  Age: 78 Year
  Sex: Female

DRUGS (1)
  1. SALMETEROL XINAFOATE + FLUTICASONE PROPIONATE [Suspect]
     Indication: ASTHMA
     Route: 055
     Dates: start: 20080101, end: 20110120

REACTIONS (5)
  - EXPIRED DRUG ADMINISTERED [None]
  - HYPERAEMIA [None]
  - DYSPHONIA [None]
  - VOCAL CORD PARALYSIS [None]
  - LYMPHOID TISSUE HYPERPLASIA [None]
